FAERS Safety Report 24152811 (Version 4)
Quarter: 2024Q4

REPORT INFORMATION
  Report Type: Spontaneous
  Country: US (occurrence: US)
  Receive Date: 20240730
  Receipt Date: 20241029
  Transmission Date: 20250115
  Serious: Yes (Hospitalization, Other)
  Sender: PFIZER
  Company Number: US-PFIZER INC-202400224176

PATIENT
  Age: 67 Year
  Sex: Female

DRUGS (2)
  1. OXBRYTA [Suspect]
     Active Substance: VOXELOTOR
     Dosage: 1500 MG (3 TABLETS OF 500 MG), DAILY
     Route: 048
     Dates: start: 20210209
  2. OXBRYTA [Suspect]
     Active Substance: VOXELOTOR
     Dosage: 1500 MG (3 TABLETS OF 500 MG), DAILY
     Route: 048
     Dates: start: 2021

REACTIONS (5)
  - Drug ineffective [Unknown]
  - Haemoglobin decreased [Unknown]
  - Asthenia [Unknown]
  - Dizziness [Unknown]
  - Recalled product administered [Unknown]

NARRATIVE: CASE EVENT DATE: 20241023
